FAERS Safety Report 16976044 (Version 1)
Quarter: 2019Q4

REPORT INFORMATION
  Report Type: Spontaneous
  Country: US (occurrence: US)
  Receive Date: 20190914
  Receipt Date: 20190914
  Transmission Date: 20200122
  Serious: No
  Sender: FDA-Public Use
  Company Number: None

PATIENT
  Age: 63 Year
  Sex: Male

DRUGS (1)
  1. IMATINIB 400MG TAB (X30) [Suspect]
     Active Substance: IMATINIB
     Route: 048
     Dates: start: 201903

REACTIONS (4)
  - Dry skin [None]
  - Therapy cessation [None]
  - Pallor [None]
  - Skin ulcer [None]

NARRATIVE: CASE EVENT DATE: 20190914
